FAERS Safety Report 13069651 (Version 1)
Quarter: 2016Q4

REPORT INFORMATION
  Report Type: Spontaneous
  Country: US (occurrence: US)
  Receive Date: 20161228
  Receipt Date: 20161228
  Transmission Date: 20170207
  Serious: Yes (Hospitalization, Other)
  Sender: FDA-Public Use
  Company Number: US-MAYNE PHARMA-2016MYN000728

PATIENT
  Age: 63 Year
  Sex: Male
  Weight: 68.93 kg

DRUGS (16)
  1. CITALOPRAM [Concomitant]
     Active Substance: CITALOPRAM HYDROBROMIDE
     Dosage: 40 MG, ONCE DAILY
  2. DIAZEPAM. [Concomitant]
     Active Substance: DIAZEPAM
     Dosage: 10 MG, BID
  3. DOFETILIDE. [Suspect]
     Active Substance: DOFETILIDE
     Indication: ATRIAL FIBRILLATION
     Dosage: 500 MCG, ONCE, DAILY
     Route: 048
     Dates: end: 2014
  4. ASPIRIN                            /00002701/ [Concomitant]
     Active Substance: ASPIRIN
     Dosage: 81 MG, ONCE
  5. CLARITIN [Concomitant]
     Active Substance: LORATADINE
     Dosage: 10 MG, ONCE, DAILY
  6. WARFARIN [Concomitant]
     Active Substance: WARFARIN
     Dosage: 5 MG, ONCE A DAY
  7. BISOPROLOL [Concomitant]
     Active Substance: BISOPROLOL
     Dosage: 5 MG, ONCE A DAY
  8. CRESTOR [Concomitant]
     Active Substance: ROSUVASTATIN CALCIUM
     Dosage: 20 MG, ONCE DAILY
  9. MIRTAZAPINE. [Concomitant]
     Active Substance: MIRTAZAPINE
     Dosage: 15 MG, ONCE, DAILY
  10. DOFETILIDE. [Suspect]
     Active Substance: DOFETILIDE
     Indication: ARRHYTHMIA
     Dosage: 250 MCG, BID
     Route: 048
     Dates: start: 20161011
  11. INSPRA [Concomitant]
     Active Substance: EPLERENONE
     Dosage: 25 MG, ONCE DAILY
  12. LASIX [Concomitant]
     Active Substance: FUROSEMIDE
     Dosage: 40 MG, ONCE, DAILY
  13. NOVOLOG [Concomitant]
     Active Substance: INSULIN ASPART
     Dosage: UNK, SLIDING SCALE , ABOUT 7 UNITS
  14. LEVEMIR [Concomitant]
     Active Substance: INSULIN DETEMIR
     Dosage: 64 U, ONCE, NIGHLY
  15. OXYCODONE [Concomitant]
     Active Substance: OXYCODONE
     Dosage: 7.5/325 MG, BID
  16. ACIPHEX [Concomitant]
     Active Substance: RABEPRAZOLE SODIUM
     Dosage: 20 MG, ONCE

REACTIONS (3)
  - Drug dose omission [Unknown]
  - Cardiac arrest [Recovered/Resolved]
  - No adverse event [Unknown]

NARRATIVE: CASE EVENT DATE: 2014
